FAERS Safety Report 17792763 (Version 2)
Quarter: 2020Q3

REPORT INFORMATION
  Report Type: Spontaneous
  Country: JP (occurrence: JP)
  Receive Date: 20200515
  Receipt Date: 20200910
  Transmission Date: 20201102
  Serious: Yes (Death, Life-Threatening, Other)
  Sender: FDA-Public Use
  Company Number: JP-JAZZ-2020-JP-006442

PATIENT
  Age: 7 Year
  Sex: Male
  Weight: 20.2 kg

DRUGS (2)
  1. RECOMODULIN [Suspect]
     Active Substance: THROMBOMODULIN ALFA
     Indication: PRODUCT USED FOR UNKNOWN INDICATION
  2. DEFITELIO [Suspect]
     Active Substance: DEFIBROTIDE SODIUM
     Indication: VENOOCCLUSIVE LIVER DISEASE
     Dosage: 25 MILLIGRAM/KILOGRAM, QD
     Route: 042
     Dates: start: 20200413, end: 20200422

REACTIONS (5)
  - Hepatic rupture [Fatal]
  - Disease progression [Fatal]
  - Hepatoblastoma [Fatal]
  - Diaphragmatic rupture [Recovered/Resolved]
  - Haemothorax [Recovered/Resolved]

NARRATIVE: CASE EVENT DATE: 20200422
